FAERS Safety Report 25248157 (Version 2)
Quarter: 2025Q3

REPORT INFORMATION
  Report Type: Spontaneous
  Country: AU (occurrence: AU)
  Receive Date: 20250429
  Receipt Date: 20250809
  Transmission Date: 20251020
  Serious: Yes (Other)
  Sender: ALEXION PHARMACEUTICALS
  Company Number: AU-ASTRAZENECA-202504OCE018108AU

PATIENT
  Age: 60 Year

DRUGS (4)
  1. OSIMERTINIB [Suspect]
     Active Substance: OSIMERTINIB
     Dosage: 80 MILLIGRAM, QD
     Route: 065
     Dates: start: 202209
  2. OSIMERTINIB [Suspect]
     Active Substance: OSIMERTINIB
     Dosage: 160 MILLIGRAM, QD
     Route: 065
     Dates: start: 202211
  3. OSIMERTINIB [Suspect]
     Active Substance: OSIMERTINIB
     Dosage: 80 MILLIGRAM, QD
     Route: 065
     Dates: start: 202307
  4. TEPOTINIB [Concomitant]
     Active Substance: TEPOTINIB
     Dosage: 450 MILLIGRAM, QD
     Route: 065
     Dates: start: 202307

REACTIONS (5)
  - Disease progression [Unknown]
  - Nausea [Unknown]
  - Oedema peripheral [Unknown]
  - Drug ineffective [Unknown]
  - Off label use [Unknown]
